FAERS Safety Report 16328083 (Version 2)
Quarter: 2019Q2

REPORT INFORMATION
  Report Type: Spontaneous
  Country: FR (occurrence: FR)
  Receive Date: 20190518
  Receipt Date: 20190607
  Transmission Date: 20190711
  Serious: Yes (Hospitalization, Other)
  Sender: FDA-Public Use
  Company Number: FR-ZYDUS-036939

PATIENT
  Age: 84 Year
  Sex: Male

DRUGS (2)
  1. EZETIMIBE. [Suspect]
     Active Substance: EZETIMIBE
     Indication: PRODUCT USED FOR UNKNOWN INDICATION
     Route: 065
  2. ATORVASTATIIN [Suspect]
     Active Substance: ATORVASTATIN
     Indication: PROPHYLAXIS
     Route: 065

REACTIONS (7)
  - Malaise [Unknown]
  - Angina pectoris [Unknown]
  - Drug tolerance decreased [Unknown]
  - Ventricular hypokinesia [Unknown]
  - Dyspnoea [Unknown]
  - Myalgia [Unknown]
  - Myocardial ischaemia [Unknown]
